FAERS Safety Report 15633542 (Version 1)
Quarter: 2018Q4

REPORT INFORMATION
  Report Type: Spontaneous
  Country: US (occurrence: US)
  Receive Date: 20181119
  Receipt Date: 20181119
  Transmission Date: 20190205
  Serious: No
  Sender: FDA-Public Use
  Company Number: US-PFIZER INC-2018468751

PATIENT
  Age: 6 Year
  Sex: Male

DRUGS (1)
  1. GENOTROPIN [Suspect]
     Active Substance: SOMATROPIN
     Dosage: 0.4 MG, WEEKLY(GENOTROPIN 0.4MG SUB Q, 7 DAYS A WEEK)
     Route: 058

REACTIONS (5)
  - Product dose omission [Unknown]
  - Vomiting [Unknown]
  - Malaise [Unknown]
  - Abdominal discomfort [Unknown]
  - Somnolence [Unknown]
